FAERS Safety Report 4304543-0 (Version None)
Quarter: 2004Q1

REPORT INFORMATION
  Report Type: 
  Country: None (occurrence: None)
  Receive Date: 20040224
  Receipt Date: 20040224
  Transmission Date: 20041129
  Serious: Yes (Other)
  Sender: FDA-Public Use
  Company Number: None

PATIENT
  Age: 59 Year
  Sex: Female
  Weight: 95.2554 kg

DRUGS (1)
  1. ZYCAM ^DIZT^ BY ZYCAM LLC [Suspect]
     Indication: NASOPHARYNGITIS
     Dosage: INSERT SWAB NASALLY
     Route: 045
     Dates: start: 20040129, end: 20090202

REACTIONS (3)
  - ANOSMIA [None]
  - NASAL MUCOSAL DISORDER [None]
  - OEDEMA MUCOSAL [None]
